FAERS Safety Report 7646876-6 (Version None)
Quarter: 2011Q3

REPORT INFORMATION
  Report Type: 
  Country: None (occurrence: None)
  Receive Date: 20110801
  Receipt Date: 20110721
  Transmission Date: 20111222
  Serious: Yes (Other)
  Sender: FDA-Public Use
  Company Number: JP-SANOFI-AVENTIS-2011SA047136

PATIENT
  Age: 70 Year
  Sex: Male

DRUGS (5)
  1. OXALIPLATIN [Suspect]
     Indication: COLON CANCER
     Dosage: TOTAL 3 CYCLES
     Route: 041
  2. FLUOROURACIL [Concomitant]
     Dosage: TOTAL 3 CYCLES
     Route: 040
  3. FLUOROURACIL [Concomitant]
     Indication: COLON CANCER
     Dosage: TOTAL 3 CYCLES
     Route: 041
  4. LEUCOVORIN CALCIUM [Concomitant]
     Indication: COLON CANCER
     Route: 041
  5. AVASTIN [Concomitant]
     Indication: COLON CANCER

REACTIONS (3)
  - ACUTE RESPIRATORY DISTRESS SYNDROME [None]
  - NEUTROPHIL COUNT DECREASED [None]
  - HAEMOPTYSIS [None]
